FAERS Safety Report 23784093 (Version 1)
Quarter: 2024Q2

REPORT INFORMATION
  Report Type: Spontaneous
  Country: US (occurrence: None)
  Receive Date: 20240424
  Receipt Date: 20240424
  Transmission Date: 20240716
  Serious: Yes (Hospitalization)
  Sender: FDA-Public Use
  Company Number: None

PATIENT
  Age: 76 Year
  Sex: Male
  Weight: 109 kg

DRUGS (2)
  1. TRIAMCINOLONE ACETONIDE [Suspect]
     Active Substance: TRIAMCINOLONE ACETONIDE
     Indication: Pain
     Dosage: FREQUENCY : ONCE;?OTHER ROUTE : OTHER;?
     Route: 050
     Dates: start: 20230420
  2. LIDOCAINE [Suspect]
     Active Substance: LIDOCAINE

REACTIONS (6)
  - Anaphylactic reaction [None]
  - Pharyngeal swelling [None]
  - Circumoral oedema [None]
  - Tongue oedema [None]
  - Sinus tachycardia [None]
  - Chest pain [None]

NARRATIVE: CASE EVENT DATE: 20230420
